FAERS Safety Report 5124358-3 (Version None)
Quarter: 2006Q3

REPORT INFORMATION
  Report Type: 
  Country: None (occurrence: None)
  Receive Date: 20060816
  Receipt Date: 20060620
  Transmission Date: 20061208
  Serious: No
  Sender: FDA-Public Use
  Company Number: US200606004627

PATIENT
  Age: 64 Year
  Sex: Male

DRUGS (2)
  1. CIALIS [Suspect]
     Indication: ERECTILE DYSFUNCTION
     Dosage: 20 MG
     Dates: start: 20060606
  2. ALLERGY MEDICATION [Concomitant]

REACTIONS (5)
  - DYSPEPSIA [None]
  - FEELING HOT [None]
  - FLUSHING [None]
  - HEADACHE [None]
  - NASAL CONGESTION [None]
